FAERS Safety Report 6278686-9 (Version None)
Quarter: 2009Q3

REPORT INFORMATION
  Report Type: 
  Country: None (occurrence: None)
  Receive Date: 20090721
  Receipt Date: 20090706
  Transmission Date: 20100115
  Serious: Yes (Hospitalization)
  Sender: FDA-Public Use
  Company Number: 001220

PATIENT
  Age: 36 Year
  Sex: Female

DRUGS (8)
  1. ALPRAZOLAM [Suspect]
     Dosage: (1 MG TID ORAL)
     Route: 048
  2. METHADONE HCL [Suspect]
     Dosage: (170 MG QD)
  3. PHENYTOIN SODIUM [Suspect]
     Dosage: (100 MG TID)
  4. GABAPENTIN [Suspect]
     Dosage: (100 MG TID)
  5. LANTUS [Suspect]
     Dosage: (40 IU QD SUBCUTANEOUS)
     Route: 058
  6. OLANZAPINE [Suspect]
     Dosage: (20 MG BID)
  7. CITALOPRAM HYDROBROMIDE [Suspect]
     Dosage: (20 MG QD)
  8. QUETIAPINE FUMARATE [Suspect]
     Dosage: (100 MG QD)

REACTIONS (7)
  - ABDOMINAL PAIN [None]
  - ACUTE RESPIRATORY FAILURE [None]
  - AGITATION [None]
  - BACK PAIN [None]
  - PNEUMONIA [None]
  - RASH MORBILLIFORM [None]
  - SEPSIS [None]
